FAERS Safety Report 7945889-4 (Version None)
Quarter: 2011Q4

REPORT INFORMATION
  Report Type: 
  Country: None (occurrence: None)
  Receive Date: 20111129
  Receipt Date: 20111117
  Transmission Date: 20120403
  Serious: Yes (Hospitalization)
  Sender: FDA-Public Use
  Company Number: JP-NOVOPROD-337372

PATIENT

DRUGS (3)
  1. PRANLUKAST [Concomitant]
     Dosage: 60 MG, QD
     Route: 048
     Dates: start: 20020820, end: 20100101
  2. NORDITROPIN FLEXPROCHU 10 MG/ML [Suspect]
     Indication: SMALL FOR DATES BABY
     Dosage: 0.35MG-0.60MG
     Route: 058
     Dates: start: 20091118
  3. SINGULAIR [Concomitant]
     Dosage: 4 MG, QD
     Route: 048
     Dates: start: 20100115

REACTIONS (3)
  - TONSILLAR HYPERTROPHY [None]
  - ADENOIDAL HYPERTROPHY [None]
  - SLEEP APNOEA SYNDROME [None]
